FAERS Safety Report 6130073-X (Version None)
Quarter: 2009Q1

REPORT INFORMATION
  Report Type: 
  Country: None (occurrence: None)
  Receive Date: 20090324
  Receipt Date: 20090319
  Transmission Date: 20090719
  Serious: Yes (Death, Hospitalization)
  Sender: FDA-Public Use
  Company Number: JP-WYE-H01585007

PATIENT
  Sex: Male
  Weight: 54 kg

DRUGS (16)
  1. MYLOTARG [Suspect]
     Indication: ACUTE MYELOID LEUKAEMIA RECURRENT
     Route: 041
     Dates: start: 20070226, end: 20070226
  2. MYLOTARG [Suspect]
     Route: 041
     Dates: start: 20070312, end: 20070312
  3. DEPAS [Concomitant]
     Indication: ANXIETY
     Route: 048
     Dates: start: 20050417, end: 20070409
  4. SILECE [Concomitant]
     Indication: INSOMNIA
     Route: 048
     Dates: start: 20040726, end: 20070409
  5. ACLACINON [Suspect]
     Indication: ACUTE MYELOID LEUKAEMIA RECURRENT
     Dosage: UNKNOWN
     Route: 042
     Dates: start: 20070402, end: 20070415
  6. ACLACINON [Suspect]
     Dosage: UNKNOWN
     Route: 042
     Dates: start: 20070510, end: 20070523
  7. ACLACINON [Suspect]
     Dosage: UNKNOWN
     Route: 042
     Dates: start: 20070615, end: 20070628
  8. ACLACINON [Suspect]
     Dosage: UNKNOWN
     Route: 042
     Dates: start: 20070707, end: 20070717
  9. CRAVIT [Suspect]
     Indication: PROPHYLAXIS
     Route: 048
     Dates: start: 20061230, end: 20070309
  10. VFEND [Suspect]
     Indication: PROPHYLAXIS
     Route: 048
     Dates: start: 20061229, end: 20070409
  11. CYLOCIDE [Suspect]
     Indication: ACUTE MYELOID LEUKAEMIA RECURRENT
     Dosage: UNKNOWN
     Route: 042
     Dates: start: 20070402, end: 20070415
  12. CYLOCIDE [Suspect]
     Dosage: UNKNOWN
     Route: 042
     Dates: start: 20070510, end: 20070523
  13. CYLOCIDE [Suspect]
     Dosage: UNKNOWN
     Route: 042
     Dates: start: 20070615, end: 20070628
  14. CYLOCIDE [Suspect]
     Dosage: UNKNOWN
     Route: 042
     Dates: start: 20070707, end: 20070717
  15. GASTER [Concomitant]
     Indication: PROPHYLAXIS
     Route: 048
     Dates: start: 20050523, end: 20070409
  16. OXYCONTIN [Concomitant]
     Indication: NEURALGIA
     Route: 048
     Dates: start: 20060921, end: 20070409

REACTIONS (9)
  - ANAEMIA [None]
  - BLOOD ALKALINE PHOSPHATASE INCREASED [None]
  - BLOOD BILIRUBIN INCREASED [None]
  - BLOOD CREATININE INCREASED [None]
  - BLOOD UREA INCREASED [None]
  - HYPOALBUMINAEMIA [None]
  - NEUTROPENIA [None]
  - PNEUMONIA [None]
  - THROMBOCYTOPENIA [None]
